FAERS Safety Report 23503357 (Version 1)
Quarter: 2024Q1

REPORT INFORMATION
  Report Type: Spontaneous
  Country: US (occurrence: US)
  Receive Date: 20240208
  Receipt Date: 20240208
  Transmission Date: 20240409
  Serious: Yes (Other)
  Sender: FDA-Public Use
  Company Number: US-PRINSTON PHARMACEUTICAL INC.-2024PRN00047

PATIENT
  Age: 56 Year
  Sex: Male

DRUGS (1)
  1. TADALAFIL [Suspect]
     Active Substance: TADALAFIL
     Indication: Prostatic disorder
     Dosage: 5 MG, 1X/DAY
     Route: 048
     Dates: end: 202401

REACTIONS (3)
  - Hepatitis [Unknown]
  - Hepatic pain [Recovered/Resolved]
  - Dyspnoea [Unknown]
